FAERS Safety Report 7021229-2 (Version None)
Quarter: 2010Q3

REPORT INFORMATION
  Report Type: 
  Country: None (occurrence: None)
  Receive Date: 20100929
  Receipt Date: 20100921
  Transmission Date: 20110219
  Serious: Yes (Other)
  Sender: FDA-Public Use
  Company Number: NL-PFIZER INC-2010120108

PATIENT
  Age: 37 Year
  Sex: Female

DRUGS (3)
  1. XANAX [Suspect]
     Dosage: UNK
     Route: 050
     Dates: start: 20090101
  2. NEXIUM [Suspect]
     Dosage: UNK
     Route: 050
     Dates: start: 20090101
  3. PAROXETINE HYDROCHLORIDE [Suspect]
     Dosage: UNK
     Route: 050
     Dates: start: 20090101

REACTIONS (1)
  - INTRA-UTERINE DEATH [None]
